FAERS Safety Report 7307534-0 (Version None)
Quarter: 2011Q1

REPORT INFORMATION
  Report Type: 
  Country: None (occurrence: None)
  Receive Date: 20110223
  Receipt Date: 20110212
  Transmission Date: 20110831
  Serious: Yes (Other)
  Sender: FDA-Public Use
  Company Number: CA-JNJFOC-20110204488

PATIENT
  Sex: Female
  Weight: 127 kg

DRUGS (17)
  1. METHADONE [Concomitant]
  2. REMICADE [Suspect]
     Route: 042
  3. PREDNISONE [Concomitant]
  4. FUROSEMIDE [Concomitant]
  5. PROZAC [Concomitant]
  6. INSULIN [Concomitant]
  7. SYNTHROID [Concomitant]
  8. REMICADE [Suspect]
     Indication: PSORIASIS
     Route: 042
  9. AMITRIPTYLINE [Concomitant]
  10. RAMIPRIL [Concomitant]
  11. CARVEDILOL [Concomitant]
  12. NEXIUM [Concomitant]
  13. TRAZODONE HCL [Concomitant]
  14. NOVO-SPIROTON [Concomitant]
  15. OXYBUTYNIN [Concomitant]
  16. SEROQUEL [Concomitant]
  17. BENADRYL [Concomitant]
     Indication: PREMEDICATION
     Route: 042

REACTIONS (4)
  - MUSCLE SPASMS [None]
  - INFUSION RELATED REACTION [None]
  - CHEST DISCOMFORT [None]
  - UPPER RESPIRATORY TRACT INFECTION [None]
